FAERS Safety Report 17971022 (Version 7)
Quarter: 2020Q3

REPORT INFORMATION
  Report Type: Spontaneous
  Country: PT (occurrence: PT)
  Receive Date: 20200701
  Receipt Date: 20200727
  Transmission Date: 20201103
  Serious: Yes (Hospitalization, Other)
  Sender: FDA-Public Use
  Company Number: NVSC2020PT168084

PATIENT
  Age: 15 Year
  Sex: Male

DRUGS (31)
  1. CLONAZEPAM. [Suspect]
     Active Substance: CLONAZEPAM
     Indication: TOURETTE^S DISORDER
     Dosage: 1.5 MG, QD
     Route: 065
  2. FLUVOXAMINE [Suspect]
     Active Substance: FLUVOXAMINE
     Indication: OBSESSIVE-COMPULSIVE DISORDER
     Dosage: 50 MG, QD
     Route: 065
  3. FLUVOXAMINE [Suspect]
     Active Substance: FLUVOXAMINE
     Indication: TIC
  4. ETHYL LOFLAZEPATE [Suspect]
     Active Substance: ETHYL LOFLAZEPATE
     Indication: TOURETTE^S DISORDER
  5. PIMOZIDE. [Suspect]
     Active Substance: PIMOZIDE
     Indication: OBSESSIVE-COMPULSIVE DISORDER
     Dosage: 6 MG, QD
     Route: 065
  6. CLONIDINE. [Suspect]
     Active Substance: CLONIDINE
     Dosage: 75 ?G, QD
     Route: 065
  7. CLONAZEPAM. [Suspect]
     Active Substance: CLONAZEPAM
     Indication: TIC
  8. FLUVOXAMINE [Suspect]
     Active Substance: FLUVOXAMINE
     Indication: ANXIETY
  9. PIMOZIDE. [Suspect]
     Active Substance: PIMOZIDE
     Indication: TOURETTE^S DISORDER
  10. CLONAZEPAM. [Suspect]
     Active Substance: CLONAZEPAM
     Indication: ANXIETY
  11. ETHYL LOFLAZEPATE [Suspect]
     Active Substance: ETHYL LOFLAZEPATE
     Indication: TIC
  12. DIAZEPAM. [Suspect]
     Active Substance: DIAZEPAM
     Indication: TOURETTE^S DISORDER
     Dosage: 5 MG, Q12H (BID)
     Route: 065
  13. TETRABENAZINE. [Suspect]
     Active Substance: TETRABENAZINE
     Dosage: 37.5 MG + 25 MG + 37.5 MG
     Route: 065
  14. LORAZEPAM. [Suspect]
     Active Substance: LORAZEPAM
     Dosage: 2 MG, Q8H
     Route: 065
  15. CLONIDINE. [Suspect]
     Active Substance: CLONIDINE
     Indication: TOURETTE^S DISORDER
     Dosage: 112.5 UG, TID (Q8H)
     Route: 065
  16. CLONIDINE. [Suspect]
     Active Substance: CLONIDINE
     Dosage: 600 UG, QD (150 UG, QID)
     Route: 065
  17. FLUVOXAMINE [Suspect]
     Active Substance: FLUVOXAMINE
     Indication: TOURETTE^S DISORDER
  18. TETRABENAZINE. [Suspect]
     Active Substance: TETRABENAZINE
     Indication: TOURETTE^S DISORDER
     Dosage: 37.5 MG, Q12H
     Route: 065
  19. MIDAZOLAM. [Suspect]
     Active Substance: MIDAZOLAM
     Indication: TOURETTE^S DISORDER
     Dosage: UNK (INJECTION)
     Route: 040
  20. LAMOTRIGINE. [Suspect]
     Active Substance: LAMOTRIGINE
     Indication: TIC
  21. TIAPRIDE [Suspect]
     Active Substance: TIAPRIDE
     Indication: TOURETTE^S DISORDER
     Dosage: 50 MG, TID (Q8H)
     Route: 065
  22. TETRABENAZINE. [Suspect]
     Active Substance: TETRABENAZINE
     Dosage: 25 MG, QD
     Route: 065
  23. ARIPIPRAZOLE. [Suspect]
     Active Substance: ARIPIPRAZOLE
     Indication: TOURETTE^S DISORDER
     Dosage: 1 MG, QD
     Route: 065
  24. LORAZEPAM. [Suspect]
     Active Substance: LORAZEPAM
     Indication: TOURETTE^S DISORDER
     Dosage: 1 MG, BID
     Route: 065
  25. CLONAZEPAM. [Suspect]
     Active Substance: CLONAZEPAM
     Indication: OBSESSIVE-COMPULSIVE DISORDER
     Dosage: 0.5 MG, TID
     Route: 065
  26. LAMOTRIGINE. [Suspect]
     Active Substance: LAMOTRIGINE
     Indication: OBSESSIVE-COMPULSIVE DISORDER
     Dosage: 75 MG, QD
     Route: 065
  27. ETHYL LOFLAZEPATE [Suspect]
     Active Substance: ETHYL LOFLAZEPATE
     Indication: OBSESSIVE-COMPULSIVE DISORDER
     Dosage: 6 MG, QD
     Route: 065
  28. ETHYL LOFLAZEPATE [Suspect]
     Active Substance: ETHYL LOFLAZEPATE
     Indication: ANXIETY
  29. PIMOZIDE. [Suspect]
     Active Substance: PIMOZIDE
     Indication: ANXIETY
  30. SERTRALINE [Suspect]
     Active Substance: SERTRALINE HYDROCHLORIDE
     Indication: TOURETTE^S DISORDER
     Dosage: 50 MG, QD
     Route: 065
  31. CLONIDINE. [Suspect]
     Active Substance: CLONIDINE
     Dosage: 225 UG, QD
     Route: 065

REACTIONS (5)
  - Neuroleptic malignant syndrome [Recovering/Resolving]
  - Catatonia [Recovering/Resolving]
  - Drug ineffective [Unknown]
  - Parkinsonism [Recovered/Resolved]
  - Drug ineffective for unapproved indication [Unknown]
